FAERS Safety Report 25131628 (Version 1)
Quarter: 2025Q1

REPORT INFORMATION
  Report Type: Spontaneous
  Country: JP (occurrence: JP)
  Receive Date: 20250327
  Receipt Date: 20250327
  Transmission Date: 20250409
  Serious: Yes (Hospitalization)
  Sender: EISAI
  Company Number: JP-Eisai-EC-2025-186485

PATIENT
  Age: 37 Year
  Sex: Male

DRUGS (1)
  1. LEMBOREXANT [Suspect]
     Active Substance: LEMBOREXANT
     Indication: Insomnia

REACTIONS (2)
  - Overdose [Unknown]
  - Altered state of consciousness [Unknown]
